FAERS Safety Report 25135838 (Version 1)
Quarter: 2025Q1

REPORT INFORMATION
  Report Type: Spontaneous
  Country: US (occurrence: None)
  Receive Date: 20250328
  Receipt Date: 20250328
  Transmission Date: 20250408
  Serious: Yes (Life-Threatening)
  Sender: FDA-CTU
  Company Number: None

PATIENT
  Age: 67 Year
  Sex: Female
  Weight: 170 kg

DRUGS (17)
  1. METFORMIN [Suspect]
     Active Substance: METFORMIN HYDROCHLORIDE
     Indication: Diabetes mellitus
     Dosage: 100 TABLETS DAILY ORAL
     Route: 048
     Dates: start: 20210401, end: 20240423
  2. LEVOTHYROXINE [Concomitant]
     Active Substance: LEVOTHYROXINE
  3. ARMOUR THYROID [Concomitant]
     Active Substance: THYROID, PORCINE
  4. VITAMIN B12 [Concomitant]
     Active Substance: CYANOCOBALAMIN
  5. GABAPENTIN [Concomitant]
     Active Substance: GABAPENTIN
  6. DEVICE [Concomitant]
     Active Substance: DEVICE
  7. UNSPECIFIED INGREDIENT [Concomitant]
     Active Substance: UNSPECIFIED INGREDIENT
  8. metaxilone [Concomitant]
  9. Alereclear [Concomitant]
  10. MAGNESIUM [Concomitant]
     Active Substance: MAGNESIUM
  11. CALCIUM [Concomitant]
     Active Substance: CALCIUM
  12. KRILL OIL [Concomitant]
     Active Substance: DIETARY SUPPLEMENT\KRILL OIL
  13. turamic [Concomitant]
  14. daily aspirin low dose [Concomitant]
  15. HERBALS\VITIS VINIFERA SEED [Concomitant]
     Active Substance: HERBALS\VITIS VINIFERA SEED
  16. baby vitamin [Concomitant]
  17. IRON [Concomitant]
     Active Substance: IRON

REACTIONS (5)
  - Influenza [None]
  - Muscle atrophy [None]
  - Varicose vein [None]
  - Weight increased [None]
  - Skin disorder [None]

NARRATIVE: CASE EVENT DATE: 20240423
